FAERS Safety Report 11215255 (Version 1)
Quarter: 2015Q2

REPORT INFORMATION
  Report Type: Spontaneous
  Country: US (occurrence: US)
  Receive Date: 20150624
  Receipt Date: 20150624
  Transmission Date: 20150821
  Serious: No
  Sender: FDA-Public Use
  Company Number: US-PFIZER INC-2015204952

PATIENT
  Age: 50 Year
  Sex: Female
  Weight: 70.3 kg

DRUGS (6)
  1. LYRICA [Suspect]
     Active Substance: PREGABALIN
     Indication: FIBROMYALGIA
     Dosage: 150 MG, 2X/DAY (75MG CAPSULE, TWO CAPSULES TWICE A DAY)
     Dates: start: 201409
  2. CELEBREX [Concomitant]
     Active Substance: CELECOXIB
     Dosage: 200 MG, 2X/DAY
  3. LYRICA [Suspect]
     Active Substance: PREGABALIN
     Dosage: (ONE 75MG CAPSULE IN THE MORNING, ONE 75MG CAPSULE AT LUNCH AND TWO 75MG CAPSULES AT NIGHT) 3X/DAY
  4. TRAMADOL [Suspect]
     Active Substance: TRAMADOL
     Dosage: 100 MG, 4X/DAY (50MG TABLETS, 2 TABLETS FOUR TIMES A DAY)
  5. TRAMADOL [Suspect]
     Active Substance: TRAMADOL
     Dosage: UNK, AS NEEDED
  6. FLEXERIL [Concomitant]
     Active Substance: CYCLOBENZAPRINE HYDROCHLORIDE
     Dosage: UNK, AS NEEDED

REACTIONS (7)
  - Hypersensitivity [Not Recovered/Not Resolved]
  - Discomfort [Not Recovered/Not Resolved]
  - Condition aggravated [Not Recovered/Not Resolved]
  - Eye pruritus [Unknown]
  - Ear congestion [Unknown]
  - Rhinorrhoea [Unknown]
  - Dysphonia [Not Recovered/Not Resolved]
